FAERS Safety Report 21145953 (Version 5)
Quarter: 2022Q4

REPORT INFORMATION
  Report Type: Report from Study
  Country: AU (occurrence: AU)
  Receive Date: 20220729
  Receipt Date: 20221013
  Transmission Date: 20230113
  Serious: Yes (Other)
  Sender: FDA-Public Use
  Company Number: AU-NOVARTISPH-NVSC2022AU171565

PATIENT
  Sex: Female

DRUGS (3)
  1. COSENTYX [Suspect]
     Active Substance: SECUKINUMAB
     Indication: Ankylosing spondylitis
     Dosage: 300 MG
     Route: 065
  2. COSENTYX [Suspect]
     Active Substance: SECUKINUMAB
     Dosage: UNK UNK, QMO
     Route: 058
     Dates: start: 20190623
  3. COSENTYX [Suspect]
     Active Substance: SECUKINUMAB
     Dosage: UNK UNK, Q2W (ONCE EVERY 2 WEEKS)
     Route: 058

REACTIONS (4)
  - Behcet^s syndrome [Unknown]
  - Mouth ulceration [Unknown]
  - Inappropriate schedule of product administration [Unknown]
  - Therapeutic product effect incomplete [Unknown]
